FAERS Safety Report 5977383-4 (Version None)
Quarter: 2008Q4

REPORT INFORMATION
  Report Type: 
  Country: None (occurrence: None)
  Receive Date: 20081203
  Receipt Date: 20081126
  Transmission Date: 20090506
  Serious: Yes (Other)
  Sender: FDA-Public Use
  Company Number: PHEH2008US08390

PATIENT
  Sex: Male

DRUGS (3)
  1. FOCALIN XR [Suspect]
     Indication: ATTENTION DEFICIT/HYPERACTIVITY DISORDER
     Dosage: 10 MG, QD
     Route: 048
     Dates: start: 20080201
  2. FOCALIN XR [Suspect]
     Indication: DEVELOPMENTAL DELAY
  3. FOCALIN XR [Suspect]
     Indication: SPEECH DISORDER DEVELOPMENTAL

REACTIONS (2)
  - BREAST HYPERPLASIA [None]
  - THYROIDITIS [None]
